FAERS Safety Report 21532894 (Version 1)
Quarter: 2022Q4

REPORT INFORMATION
  Report Type: Report from Study
  Country: US (occurrence: US)
  Receive Date: 20221101
  Receipt Date: 20221101
  Transmission Date: 20230113
  Serious: Yes (Other)
  Sender: FDA-Public Use
  Company Number: US-TAKEDA-2022TUS054121

PATIENT
  Sex: Female
  Weight: 109 kg

DRUGS (26)
  1. HUMAN IMMUNOGLOBULIN G [Suspect]
     Active Substance: HUMAN IMMUNOGLOBULIN G
     Indication: Immunodeficiency common variable
     Dosage: 22 GRAM, Q2WEEKS
     Route: 058
     Dates: start: 20220628
  2. LEVALBUTEROL TARTRATE [Concomitant]
     Active Substance: LEVALBUTEROL TARTRATE
  3. FAMOTIDINE [Concomitant]
     Active Substance: FAMOTIDINE
  4. DIPHENHYDRAMINE HYDROCHLORIDE [Concomitant]
     Active Substance: DIPHENHYDRAMINE HYDROCHLORIDE
  5. PANTOPRAZOLE SODIUM ANHYDROUS [Concomitant]
     Active Substance: PANTOPRAZOLE SODIUM ANHYDROUS
  6. DIPHENHYDRAMINE [Concomitant]
     Active Substance: DIPHENHYDRAMINE
  7. ACETAMINOPHEN [Concomitant]
     Active Substance: ACETAMINOPHEN
  8. VITAMIN D3 [Concomitant]
     Active Substance: CHOLECALCIFEROL
  9. CROMOLYN SODIUM [Concomitant]
     Active Substance: CROMOLYN SODIUM
  10. EPINEPHRINE [Concomitant]
     Active Substance: EPINEPHRINE
  11. XOLAIR [Concomitant]
     Active Substance: OMALIZUMAB
  12. RIZATRIPTAN [Concomitant]
     Active Substance: RIZATRIPTAN
  13. AZITHROMYCIN [Concomitant]
     Active Substance: AZITHROMYCIN
  14. FLUTICASONE PROPIONATE [Concomitant]
     Active Substance: FLUTICASONE PROPIONATE
  15. FLOVENT [Concomitant]
     Active Substance: FLUTICASONE PROPIONATE
  16. FLUCONAZOLE [Concomitant]
     Active Substance: FLUCONAZOLE
  17. MUPIROCIN [Concomitant]
     Active Substance: MUPIROCIN
  18. BACTRIM [Concomitant]
     Active Substance: SULFAMETHOXAZOLE\TRIMETHOPRIM
  19. CLOTRIMAZOLE [Concomitant]
     Active Substance: CLOTRIMAZOLE
  20. VITAMIN B [Concomitant]
     Active Substance: VITAMIN B
  21. DUPIXENT [Concomitant]
     Active Substance: DUPILUMAB
  22. DEPO-PROVERA [Concomitant]
     Active Substance: MEDROXYPROGESTERONE ACETATE
  23. MONTELUKAST SODIUM [Concomitant]
     Active Substance: MONTELUKAST SODIUM
  24. DEXAMETHASONE [Concomitant]
     Active Substance: DEXAMETHASONE
  25. FEXOFENADINE HCL [Concomitant]
     Active Substance: FEXOFENADINE HYDROCHLORIDE
  26. LIDOCAINE [Concomitant]
     Active Substance: LIDOCAINE

REACTIONS (2)
  - Mast cell activation syndrome [Unknown]
  - Sinusitis [Unknown]
